FAERS Safety Report 8559554-6 (Version None)
Quarter: 2012Q3

REPORT INFORMATION
  Report Type: 
  Country: None (occurrence: None)
  Receive Date: 20120802
  Receipt Date: 20120726
  Transmission Date: 20120928
  Serious: Yes (Hospitalization)
  Sender: FDA-Public Use
  Company Number: IT-TEVA-350513ISR

PATIENT
  Sex: Female

DRUGS (8)
  1. COUMADIN [Concomitant]
     Indication: ATRIAL FIBRILLATION
  2. BISOPROLOL FUMARATE [Concomitant]
  3. LORAZEPAM [Concomitant]
  4. LANSOPRAZOLE [Concomitant]
  5. RAMIPRIL [Suspect]
     Indication: HYPERTENSION
     Dosage: 5 MILLIGRAM;
     Route: 048
     Dates: start: 20070101, end: 20120719
  6. LASIX [Suspect]
     Indication: HYPERTENSION
     Dosage: 25 MILLIGRAM;
     Route: 048
     Dates: start: 20070101, end: 20120719
  7. METFORMIN HYDROCHLORIDE [Concomitant]
  8. AMLODIPINE [Concomitant]

REACTIONS (3)
  - BRADYPHRENIA [None]
  - HYPONATRAEMIA [None]
  - BRADYKINESIA [None]
